FAERS Safety Report 19177786 (Version 1)
Quarter: 2021Q2

REPORT INFORMATION
  Report Type: Spontaneous
  Country: JP (occurrence: JP)
  Receive Date: 20210426
  Receipt Date: 20210426
  Transmission Date: 20210717
  Serious: Yes (Hospitalization, Other)
  Sender: FDA-Public Use
  Company Number: JP-ORGANON-O2104JPN000300J

PATIENT
  Age: 71 Year
  Sex: Female

DRUGS (5)
  1. ROTIGOTINE [Concomitant]
     Active Substance: ROTIGOTINE
     Indication: PARKINSON^S DISEASE
     Dosage: 13.5 MILLIGRAM
  2. ROTIGOTINE [Concomitant]
     Active Substance: ROTIGOTINE
     Dosage: 4.5 MILLIGRAM
  3. AMANTADINE HYDROCHLORIDE. [Concomitant]
     Active Substance: AMANTADINE HYDROCHLORIDE
     Indication: PARKINSON^S DISEASE
     Dosage: 50 MILLIGRAM, BID
     Route: 065
  4. MENESIT TABLETS ? 100 [Suspect]
     Active Substance: CARBIDOPA\LEVODOPA
     Dosage: 100 MILLIGRAM, QID
     Route: 048
  5. MENESIT TABLETS ? 100 [Suspect]
     Active Substance: CARBIDOPA\LEVODOPA
     Indication: PARKINSON^S DISEASE
     Dosage: 1050 MILLIGRAM, 150MGX7 PER DAY
     Route: 048

REACTIONS (3)
  - Therapeutic response shortened [Recovering/Resolving]
  - Tardive dyskinesia [Recovering/Resolving]
  - Product use issue [Unknown]

NARRATIVE: CASE EVENT DATE: 2020
